FAERS Safety Report 8306090-8 (Version None)
Quarter: 2012Q2

REPORT INFORMATION
  Report Type: 
  Country: None (occurrence: None)
  Receive Date: 20120423
  Receipt Date: 20120416
  Transmission Date: 20120825
  Serious: Yes (Hospitalization, Other)
  Sender: FDA-Public Use
  Company Number: US-ROCHE-718929

PATIENT
  Sex: Male
  Weight: 66.7 kg

DRUGS (3)
  1. ACCUTANE [Suspect]
     Route: 065
     Dates: start: 19970807, end: 19980501
  2. ACCUTANE [Suspect]
     Route: 065
  3. ACCUTANE [Suspect]
     Indication: ACNE
     Route: 065

REACTIONS (6)
  - NEPHROLITHIASIS [None]
  - COLITIS ULCERATIVE [None]
  - ORAL HERPES [None]
  - GASTROINTESTINAL INJURY [None]
  - INFLAMMATORY BOWEL DISEASE [None]
  - DIVERTICULITIS [None]
